FAERS Safety Report 7302408-3 (Version None)
Quarter: 2011Q1

REPORT INFORMATION
  Report Type: 
  Country: None (occurrence: None)
  Receive Date: 20110218
  Receipt Date: 20110215
  Transmission Date: 20110831
  Serious: No
  Sender: FDA-Public Use
  Company Number: US-PFIZER INC-2011034187

PATIENT
  Sex: Male
  Weight: 79.365 kg

DRUGS (3)
  1. ARTHROTEC [Suspect]
     Indication: BACK PAIN
  2. ARTHROTEC [Suspect]
     Indication: INTERVERTEBRAL DISC PROTRUSION
     Dosage: ^75MG^, TWICE DAILY
     Route: 048
     Dates: start: 20101001
  3. ARTHROTEC [Suspect]

REACTIONS (1)
  - DRUG EFFECT DECREASED [None]
